FAERS Safety Report 7280373-5 (Version None)
Quarter: 2011Q1

REPORT INFORMATION
  Report Type: 
  Country: None (occurrence: None)
  Receive Date: 20110208
  Receipt Date: 20101209
  Transmission Date: 20110831
  Serious: Yes (Other)
  Sender: FDA-Public Use
  Company Number: GR-SANOFI-AVENTIS-2010SA074383

PATIENT
  Age: 57 Year
  Sex: Male

DRUGS (9)
  1. INSULIN DETEMIR [Concomitant]
  2. TINZAPARIN SODIUM [Concomitant]
  3. PRILOSEC [Concomitant]
     Indication: PROPHYLAXIS
     Dates: start: 20100301
  4. NOVORAPID [Concomitant]
  5. TRIATEC [Concomitant]
     Indication: HYPERTENSION
  6. AMLODIPINE BESILATE [Concomitant]
     Indication: HYPERTENSION
  7. PANTOPRAZOLE [Concomitant]
     Indication: PROPHYLAXIS
     Dates: start: 20100301
  8. PLAVIX [Suspect]
     Route: 048
     Dates: start: 20100301, end: 20110101
  9. CONTROLOC [Concomitant]
     Indication: PROPHYLAXIS
     Dates: start: 20100301

REACTIONS (7)
  - GASTROOESOPHAGEAL REFLUX DISEASE [None]
  - COUGH [None]
  - BLOOD PRESSURE INCREASED [None]
  - CONDITION AGGRAVATED [None]
  - GASTRIC ULCER [None]
  - ABDOMINAL PAIN [None]
  - DIAPHRAGMATIC HERNIA [None]
